FAERS Safety Report 13547081 (Version 2)
Quarter: 2017Q2

REPORT INFORMATION
  Report Type: Spontaneous
  Country: IT (occurrence: IT)
  Receive Date: 20170515
  Receipt Date: 20170519
  Transmission Date: 20170830
  Serious: Yes (Hospitalization)
  Sender: FDA-Public Use
  Company Number: IT-MYLANLABS-2017M1029091

PATIENT

DRUGS (5)
  1. HALOPERIDOL. [Suspect]
     Active Substance: HALOPERIDOL
     Indication: PSYCHOTIC DISORDER
     Dosage: UNK
  2. PROMAZINE [Suspect]
     Active Substance: PROMAZINE
     Indication: PSYCHOTIC DISORDER
     Dosage: UNK
  3. CLOTIAPINE [Suspect]
     Active Substance: CLOTHIAPINE
     Indication: PSYCHOTIC DISORDER
     Dosage: UNK
  4. ARIPIPRAZOLE. [Suspect]
     Active Substance: ARIPIPRAZOLE
     Indication: PSYCHOTIC DISORDER
     Dosage: UNK
  5. VALPROIC ACID. [Suspect]
     Active Substance: VALPROIC ACID
     Indication: PSYCHOTIC DISORDER
     Dosage: UNK

REACTIONS (2)
  - Drug resistance [Unknown]
  - Drug ineffective [Unknown]
